FAERS Safety Report 24978680 (Version 1)
Quarter: 2025Q1

REPORT INFORMATION
  Report Type: Report from Study
  Country: US (occurrence: US)
  Receive Date: 20250218
  Receipt Date: 20250218
  Transmission Date: 20250409
  Serious: Yes (Death, Other)
  Sender: TAKEDA
  Company Number: US-TAKEDA-2024TUS086061

PATIENT
  Age: 71 Year
  Sex: Male

DRUGS (16)
  1. FRUQUINTINIB [Suspect]
     Active Substance: FRUQUINTINIB
     Indication: Colon cancer
     Dates: start: 20240816, end: 20250204
  2. PROCHLORPERAZINE MALEATE [Concomitant]
     Active Substance: PROCHLORPERAZINE MALEATE
     Dosage: 10 MILLIGRAM, Q6HR
  3. ONDANSETRON HYDROCHLORIDE [Concomitant]
     Active Substance: ONDANSETRON HYDROCHLORIDE
     Dosage: 8 MILLIGRAM, TID
  4. ATORVASTATIN [Concomitant]
     Active Substance: ATORVASTATIN
  5. CLONIDINE [Concomitant]
     Active Substance: CLONIDINE
  6. VITAMIN B12 [Concomitant]
     Active Substance: CYANOCOBALAMIN
  7. FELODIPINE [Concomitant]
     Active Substance: FELODIPINE
  8. HYDROCHLOROTHIAZIDE [Concomitant]
     Active Substance: HYDROCHLOROTHIAZIDE
  9. LABETALOL [Concomitant]
     Active Substance: LABETALOL
  10. LOSARTAN [Concomitant]
     Active Substance: LOSARTAN
  11. SPIRONOLACTONE [Concomitant]
     Active Substance: SPIRONOLACTONE
  12. MAGNESIUM SULFATE [Concomitant]
     Active Substance: MAGNESIUM SULFATE
  13. IRINOTECAN HYDROCHLORIDE [Concomitant]
     Active Substance: IRINOTECAN HYDROCHLORIDE
  14. LANTUS SOLOSTAR [Concomitant]
     Active Substance: INSULIN GLARGINE
  15. ZYRTEC-D ALLERGY AND CONGESTION [Concomitant]
     Active Substance: CETIRIZINE HYDROCHLORIDE\PSEUDOEPHEDRINE HYDROCHLORIDE
  16. ELIQUIS [Concomitant]
     Active Substance: APIXABAN

REACTIONS (3)
  - Death [Fatal]
  - Dysphonia [Unknown]
  - Proteinuria [Unknown]

NARRATIVE: CASE EVENT DATE: 20250204
